FAERS Safety Report 25418977 (Version 1)
Quarter: 2025Q2

REPORT INFORMATION
  Report Type: Report from Study
  Country: US (occurrence: US)
  Receive Date: 20250610
  Receipt Date: 20250610
  Transmission Date: 20250717
  Serious: Yes (Other)
  Sender: EISAI
  Company Number: US-Eisai-EC-2025-190657

PATIENT
  Age: 83 Year
  Sex: Female
  Weight: 65.9 kg

DRUGS (12)
  1. LECANEMAB [Suspect]
     Active Substance: LECANEMAB
     Indication: Dementia Alzheimer^s type
     Dates: start: 20240703, end: 20240828
  2. LECANEMAB [Suspect]
     Active Substance: LECANEMAB
     Dates: start: 20240911, end: 20240911
  3. CENTRUM SILVER THERAPEUTIC MULTI VITAMINS WITH MINERALS [Concomitant]
     Indication: Prophylaxis
     Dosage: 1 TAB
     Dates: start: 2006
  4. AMLODIPINE [Concomitant]
     Active Substance: AMLODIPINE BESYLATE
     Indication: Hypertension
     Dates: start: 2015
  5. LOSARTAN [Concomitant]
     Active Substance: LOSARTAN
     Indication: Hypertension
     Dates: start: 2015
  6. ATENOLOL [Concomitant]
     Active Substance: ATENOLOL
     Indication: Hypertension
     Dates: start: 201810
  7. DIETARY SUPPLEMENT [Concomitant]
     Active Substance: DIETARY SUPPLEMENT
     Indication: Prophylaxis
     Dates: start: 2022
  8. VITAMIN B12 [Concomitant]
     Active Substance: CYANOCOBALAMIN
     Indication: Prophylaxis
     Dates: start: 202306
  9. VITAMIN D3 [Concomitant]
     Active Substance: CHOLECALCIFEROL
     Indication: Prophylaxis
     Dates: start: 202306
  10. GEMTESA [Concomitant]
     Active Substance: VIBEGRON
     Indication: Urinary incontinence
     Dates: start: 202405
  11. PRESERVISION AREDS 2 ANTIOXIDANT MULTIPLE VITAMINS AND MINERALS [Concomitant]
     Indication: Prophylaxis
     Dosage: 1 TAB
     Dates: start: 202405
  12. LORAZEPAM [Concomitant]
     Active Substance: LORAZEPAM
     Indication: Anxiety
     Dates: start: 202408

REACTIONS (1)
  - Amyloid related imaging abnormality-microhaemorrhages and haemosiderin deposits [Not Recovered/Not Resolved]

NARRATIVE: CASE EVENT DATE: 20240911
